FAERS Safety Report 7832357-3 (Version None)
Quarter: 2011Q4

REPORT INFORMATION
  Report Type: 
  Country: None (occurrence: None)
  Receive Date: 20111022
  Receipt Date: 20111012
  Transmission Date: 20120403
  Serious: Yes (Other)
  Sender: FDA-Public Use
  Company Number: US-BAYER-201038318NA

PATIENT
  Age: 44 Year
  Sex: Female
  Weight: 60 kg

DRUGS (9)
  1. YASMIN [Suspect]
     Indication: MIGRAINE
     Route: 065
     Dates: start: 20040101, end: 20070101
  2. MACROBID [Concomitant]
  3. CEPHALEXIN [Concomitant]
  4. NAPROXEN [Concomitant]
     Indication: MIGRAINE
     Dosage: UNK
     Dates: start: 20070101
  5. SYNTHROID [Concomitant]
     Indication: HYPOTHYROIDISM
     Dosage: 150 MG, UNK
     Dates: start: 20070913
  6. YAZ [Suspect]
     Route: 065
  7. YASMIN [Suspect]
     Indication: CONTRACEPTION
  8. TOPAMAX [Concomitant]
     Dosage: 25 MG, UNK
     Route: 048
     Dates: start: 20070730
  9. NITROFURANTOIN [Concomitant]
     Dosage: 100 MG, UNK
     Route: 048
     Dates: start: 20070731

REACTIONS (4)
  - THROMBOPHLEBITIS SUPERFICIAL [None]
  - OEDEMA PERIPHERAL [None]
  - PAIN IN EXTREMITY [None]
  - ERYTHEMA [None]
